FAERS Safety Report 7653862-9 (Version None)
Quarter: 2011Q3

REPORT INFORMATION
  Report Type: 
  Country: None (occurrence: None)
  Receive Date: 20110727
  Receipt Date: 20100826
  Transmission Date: 20111222
  Serious: Yes (Other)
  Sender: FDA-Public Use
  Company Number: OMPQ-PR-1008S-0765

PATIENT
  Age: 41 Year
  Sex: Female

DRUGS (6)
  1. DIPHENHYDRAMINE (BENADRYL) (DIPHENHYDRAMINE) [Concomitant]
  2. OMNIPAQUE 140 [Suspect]
     Indication: THROMBOSIS
     Dosage: 29 ML, SINGLE DOSE
     Dates: start: 20100721, end: 20100721
  3. OMNIPAQUE 140 [Suspect]
     Indication: OEDEMA PERIPHERAL
     Dosage: 29 ML, SINGLE DOSE
     Dates: start: 20100721, end: 20100721
  4. OMNIPAQUE 140 [Suspect]
     Indication: PAIN IN EXTREMITY
     Dosage: 29 ML, SINGLE DOSE
     Dates: start: 20100721, end: 20100721
  5. OMNIPAQUE 140 [Suspect]
     Indication: ERYTHEMA
     Dosage: 29 ML, SINGLE DOSE
     Dates: start: 20100721, end: 20100721
  6. PREDNISONE [Concomitant]

REACTIONS (3)
  - THROAT TIGHTNESS [None]
  - DYSPNOEA [None]
  - ANAPHYLACTIC REACTION [None]
